FAERS Safety Report 16743180 (Version 2)
Quarter: 2019Q4

REPORT INFORMATION
  Report Type: Spontaneous
  Country: US (occurrence: US)
  Receive Date: 20190827
  Receipt Date: 20191120
  Transmission Date: 20200122
  Serious: Yes (Death)
  Sender: FDA-Public Use
  Company Number: US-ROCHE-2391105

PATIENT
  Age: 57 Year
  Sex: Female

DRUGS (1)
  1. AVASTIN [Suspect]
     Active Substance: BEVACIZUMAB
     Indication: BRAIN NEOPLASM MALIGNANT
     Dosage: STRENGTH: 16 ML/ VIAL
     Route: 042
     Dates: start: 20190503, end: 201908

REACTIONS (2)
  - Ill-defined disorder [Fatal]
  - Off label use [Unknown]

NARRATIVE: CASE EVENT DATE: 20190803
